FAERS Safety Report 5940102-1 (Version None)
Quarter: 2008Q4

REPORT INFORMATION
  Report Type: 
  Country: None (occurrence: None)
  Receive Date: 20081020
  Receipt Date: 20081020
  Transmission Date: 20090506
  Serious: Yes (Death, Hospitalization)
  Sender: FDA-Public Use
  Company Number: 2008BI017517

PATIENT
  Age: 59 Year
  Sex: Male
  Weight: 97.977 kg

DRUGS (21)
  1. TYSABRI [Suspect]
     Indication: MULTIPLE SCLEROSIS
     Dosage: 300 MG;QM;IV
     Route: 042
     Dates: start: 20070227, end: 20080528
  2. LINOMIDE [Concomitant]
  3. SOLU-MEDROL [Concomitant]
  4. WELLBUTRIN [Concomitant]
  5. BACLOFEN [Concomitant]
  6. TIZANIDINE HCL [Concomitant]
  7. PROTONIX [Concomitant]
  8. FLUOXETINE [Concomitant]
  9. CIALIS [Concomitant]
  10. SANCTURA [Concomitant]
  11. DESMOPRESSIN ACETATE [Concomitant]
  12. HYDROCODONE [Concomitant]
  13. PROVIGIL [Concomitant]
  14. BOTOX [Concomitant]
  15. AVONEX [Concomitant]
  16. CYCLOPHOSPHAMIDE [Concomitant]
  17. IVIG (PREV.) [Concomitant]
  18. METHOTREXATE (PREV.) [Concomitant]
  19. MITOXANTRONE (PREV.) [Concomitant]
  20. MYCOPHENOLATE MOFETIL (PREV.) [Concomitant]
  21. COPAXONE (PREV.) [Concomitant]

REACTIONS (30)
  - AGITATION [None]
  - ANAEMIA [None]
  - AORTIC VALVE INCOMPETENCE [None]
  - AORTIC VALVE SCLEROSIS [None]
  - AORTIC VALVE STENOSIS [None]
  - APNOEA [None]
  - ATELECTASIS [None]
  - BACTERAEMIA [None]
  - BLOOD COUNT ABNORMAL [None]
  - BRONCHITIS [None]
  - CARDIO-RESPIRATORY ARREST [None]
  - CLOSTRIDIUM DIFFICILE COLITIS [None]
  - CONDITION AGGRAVATED [None]
  - DEPRESSED LEVEL OF CONSCIOUSNESS [None]
  - GASTRITIS [None]
  - HYPOTENSION [None]
  - LYMPHADENOPATHY MEDIASTINAL [None]
  - METASTASES TO BONE [None]
  - MULTIPLE SCLEROSIS [None]
  - NO THERAPEUTIC RESPONSE [None]
  - PITTING OEDEMA [None]
  - PNEUMONIA [None]
  - PULMONARY ARTERIAL PRESSURE INCREASED [None]
  - SINUS DISORDER [None]
  - SMALL CELL LUNG CANCER METASTATIC [None]
  - STAPHYLOCOCCAL INFECTION [None]
  - SYNCOPE [None]
  - TENDERNESS [None]
  - UROSEPSIS [None]
  - WHITE BLOOD CELL COUNT DECREASED [None]
